FAERS Safety Report 19447459 (Version 2)
Quarter: 2021Q2

REPORT INFORMATION
  Report Type: Spontaneous
  Country: US (occurrence: US)
  Receive Date: 20210622
  Receipt Date: 20210622
  Transmission Date: 20210717
  Serious: Yes (Hospitalization, Other)
  Sender: FDA-Public Use
  Company Number: US-HIKMA PHARMACEUTICALS USA INC.-US-H14001-21-02803

PATIENT
  Age: 78 Year
  Sex: Male
  Weight: 66 kg

DRUGS (22)
  1. GABAPENTIN. [Concomitant]
     Active Substance: GABAPENTIN
     Indication: PRODUCT USED FOR UNKNOWN INDICATION
     Dosage: UNKNOWN
     Route: 065
  2. ARTIFICIAL SALIVA [Concomitant]
     Indication: PRODUCT USED FOR UNKNOWN INDICATION
     Dosage: UNKNOWN
     Route: 065
  3. OXALIPLATIN. [Suspect]
     Active Substance: OXALIPLATIN
     Indication: OESOPHAGEAL CARCINOMA
     Route: 042
     Dates: start: 20200724
  4. SENNA [Concomitant]
     Active Substance: SENNA LEAF\SENNOSIDES\SENNOSIDES A AND B
     Indication: PRODUCT USED FOR UNKNOWN INDICATION
     Dosage: UNKNOWN
     Route: 065
  5. PREDNISONE. [Suspect]
     Active Substance: PREDNISONE
     Indication: PRODUCT USED FOR UNKNOWN INDICATION
     Dosage: UNKNOWN
     Route: 065
     Dates: start: 20210321
  6. LEUCOVORIN. [Suspect]
     Active Substance: LEUCOVORIN
     Indication: OESOPHAGEAL CARCINOMA
     Route: 042
     Dates: start: 20200724
  7. FLUOROURACIL. [Suspect]
     Active Substance: FLUOROURACIL
     Route: 042
     Dates: start: 20200724, end: 20201105
  8. METOPROLOL. [Concomitant]
     Active Substance: METOPROLOL
     Route: 065
     Dates: start: 20210423
  9. METOPROLOL. [Concomitant]
     Active Substance: METOPROLOL
     Route: 065
     Dates: start: 20210423
  10. ZOFRAN [Concomitant]
     Active Substance: ONDANSETRON HYDROCHLORIDE
     Indication: PRODUCT USED FOR UNKNOWN INDICATION
     Dosage: UNKNOWN
     Route: 065
  11. OCEAN SALINE NASAL SPRAY [Concomitant]
     Active Substance: SODIUM CHLORIDE
     Indication: PRODUCT USED FOR UNKNOWN INDICATION
     Dosage: UNKNOWN
     Route: 065
  12. METOPROLOL. [Concomitant]
     Active Substance: METOPROLOL
     Indication: PRODUCT USED FOR UNKNOWN INDICATION
     Dosage: UNKNOWN
     Route: 065
     Dates: start: 20170808
  13. ATIVAN [Concomitant]
     Active Substance: LORAZEPAM
     Indication: PRODUCT USED FOR UNKNOWN INDICATION
     Dosage: UNKNOWN
     Route: 065
  14. COMPAZINE [Concomitant]
     Active Substance: PROCHLORPERAZINE MALEATE
     Indication: PRODUCT USED FOR UNKNOWN INDICATION
     Dosage: UNKNOWN
     Route: 065
  15. PREDNISONE. [Suspect]
     Active Substance: PREDNISONE
     Route: 065
     Dates: start: 20210425
  16. MEDICAL CANNABIS [Concomitant]
     Active Substance: CANNABIS SATIVA SUBSP. INDICA TOP
     Indication: PRODUCT USED FOR UNKNOWN INDICATION
     Dosage: UNKNOWN
     Route: 065
  17. SULFAMETHOXAZOLE AND TRIMETHOPRIM [Concomitant]
     Active Substance: SULFAMETHOXAZOLE\TRIMETHOPRIM
     Indication: PRODUCT USED FOR UNKNOWN INDICATION
     Dosage: UNKNOWN
     Route: 065
     Dates: start: 20210305
  18. TYLENOL [Concomitant]
     Active Substance: ACETAMINOPHEN
     Indication: PRODUCT USED FOR UNKNOWN INDICATION
     Dosage: UNKNOWN
     Route: 065
  19. MORPHINE [Concomitant]
     Active Substance: MORPHINE
     Indication: PRODUCT USED FOR UNKNOWN INDICATION
     Dosage: UNKNOWN
     Route: 065
  20. ZOLBETUXIMAB. [Suspect]
     Active Substance: ZOLBETUXIMAB
     Indication: OESOPHAGEAL CARCINOMA
     Dosage: UNKNOWN
     Route: 042
     Dates: start: 20200724
  21. FLUOROURACIL. [Suspect]
     Active Substance: FLUOROURACIL
     Indication: OESOPHAGEAL CARCINOMA
     Dosage: 400 MG/M2  AND 2400 MG/M2 (PUMP)
     Route: 042
     Dates: start: 20200724
  22. XARELTO [Concomitant]
     Active Substance: RIVAROXABAN
     Indication: PRODUCT USED FOR UNKNOWN INDICATION
     Dosage: UNKNOWN
     Route: 065
     Dates: start: 20201118

REACTIONS (38)
  - Hypotension [Unknown]
  - Pneumonia aspiration [Unknown]
  - Condition aggravated [Not Recovered/Not Resolved]
  - Blood lactic acid increased [Unknown]
  - Blood chloride decreased [Unknown]
  - Brain natriuretic peptide increased [Unknown]
  - Red blood cell count decreased [Unknown]
  - Neutrophil count increased [Unknown]
  - Hypophagia [Unknown]
  - Metabolic disorder [Unknown]
  - Blood calcium decreased [Unknown]
  - Mean cell volume increased [Unknown]
  - Neuropathy peripheral [Unknown]
  - Performance status decreased [Unknown]
  - Pulmonary congestion [Recovering/Resolving]
  - Weight decreased [Unknown]
  - Mean cell haemoglobin decreased [Unknown]
  - Heart rate increased [Not Recovered/Not Resolved]
  - Tachycardia [Unknown]
  - Feeling abnormal [Unknown]
  - Asthenia [Unknown]
  - Malaise [Unknown]
  - Lung opacity [Unknown]
  - Blood glucose increased [Unknown]
  - White blood cell count increased [Unknown]
  - Dyspnoea [Unknown]
  - Red cell distribution width increased [Unknown]
  - Anion gap decreased [Unknown]
  - Lymphocyte count decreased [Unknown]
  - Blood creatinine decreased [Unknown]
  - Epistaxis [Unknown]
  - Hypoxia [Recovering/Resolving]
  - Atrial fibrillation [Not Recovered/Not Resolved]
  - Lung infiltration [Recovering/Resolving]
  - Sepsis [Unknown]
  - Carbon dioxide increased [Unknown]
  - Fatigue [Unknown]
  - Productive cough [Unknown]

NARRATIVE: CASE EVENT DATE: 20210423
